FAERS Safety Report 18242473 (Version 3)
Quarter: 2021Q4

REPORT INFORMATION
  Report Type: Report from Study
  Country: CA (occurrence: CA)
  Receive Date: 20200908
  Receipt Date: 20211208
  Transmission Date: 20220303
  Serious: Yes (Life-Threatening, Hospitalization, Other)
  Sender: FDA-Public Use
  Company Number: CA-PFIZER INC-2020339125

PATIENT
  Age: 65 Year
  Sex: Male

DRUGS (51)
  1. AZITHROMYCIN [Suspect]
     Active Substance: AZITHROMYCIN
     Dosage: 250 MG
     Route: 065
  2. OMALIZUMAB [Suspect]
     Active Substance: OMALIZUMAB
     Indication: Asthma
     Dosage: 375 MG, CYCLIC (1 EVERY 2 WEEKS)
     Route: 058
  3. OMALIZUMAB [Suspect]
     Active Substance: OMALIZUMAB
     Indication: Asthma
     Dosage: 375 MG, CYCLIC (1 EVERY 2 WEEKS)
     Route: 058
  4. OMALIZUMAB [Suspect]
     Active Substance: OMALIZUMAB
     Dosage: 375 MG, CYCLIC (1 EVERY 2 WEEKS)
     Route: 058
  5. OMALIZUMAB [Suspect]
     Active Substance: OMALIZUMAB
     Dosage: 375 MG, CYCLIC (1 EVERY 2 WEEKS)
     Route: 058
  6. OMALIZUMAB [Suspect]
     Active Substance: OMALIZUMAB
     Dosage: 375 MG, CYCLIC (1 EVERY 2 WEEKS)
     Route: 058
  7. OMALIZUMAB [Suspect]
     Active Substance: OMALIZUMAB
     Dosage: 375 MG, CYCLIC (1 EVERY 2 WEEKS)
     Route: 058
  8. OMALIZUMAB [Suspect]
     Active Substance: OMALIZUMAB
     Dosage: 375 MG, CYCLIC (1 EVERY 2 WEEKS)
     Route: 058
  9. OMALIZUMAB [Suspect]
     Active Substance: OMALIZUMAB
     Dosage: 375 MG, CYCLIC (1 EVERY 2 WEEKS)
     Route: 058
  10. OMALIZUMAB [Suspect]
     Active Substance: OMALIZUMAB
     Dosage: 375 MG, CYCLIC (1 EVERY 2 WEEKS)
     Route: 058
  11. OMALIZUMAB [Suspect]
     Active Substance: OMALIZUMAB
     Dosage: 375 MG, CYCLIC (1 EVERY 2 WEEKS)
     Route: 058
  12. OMALIZUMAB [Suspect]
     Active Substance: OMALIZUMAB
     Dosage: 375 MG, CYCLIC (1 EVERY 2 WEEKS)
     Route: 058
  13. OMALIZUMAB [Suspect]
     Active Substance: OMALIZUMAB
     Dosage: 375 MG, CYCLIC (1 EVERY 2 WEEKS)
     Route: 058
  14. OMALIZUMAB [Suspect]
     Active Substance: OMALIZUMAB
     Dosage: 375 MG, CYCLIC (1 EVERY 2 WEEKS)
     Route: 058
  15. OMALIZUMAB [Suspect]
     Active Substance: OMALIZUMAB
     Dosage: 375 MG, CYCLIC (1 EVERY 2 WEEKS)
     Route: 058
  16. OMALIZUMAB [Suspect]
     Active Substance: OMALIZUMAB
     Dosage: 375 MG, CYCLIC (1 EVERY 2 WEEKS)
     Route: 058
     Dates: end: 201903
  17. OMALIZUMAB [Suspect]
     Active Substance: OMALIZUMAB
     Dosage: 375 MG, CYCLIC (1 EVERY 2 WEEKS)
     Route: 058
     Dates: start: 20200204
  18. OMALIZUMAB [Suspect]
     Active Substance: OMALIZUMAB
     Dosage: UNK
  19. OMALIZUMAB [Suspect]
     Active Substance: OMALIZUMAB
     Indication: Asthma
     Dosage: 375 MG, CYCLIC (1 EVERY 2 WEEKS)
     Route: 058
  20. OMALIZUMAB [Suspect]
     Active Substance: OMALIZUMAB
     Dosage: 375 MG, CYCLIC (1 EVERY 2 WEEKS)
     Route: 058
  21. OMALIZUMAB [Suspect]
     Active Substance: OMALIZUMAB
     Dosage: 375 MG, CYCLIC (1 EVERY 2 WEEKS)
     Route: 058
  22. OMALIZUMAB [Suspect]
     Active Substance: OMALIZUMAB
     Dosage: 375 MG, CYCLIC (1 EVERY 2 WEEKS)
     Route: 058
  23. OMALIZUMAB [Suspect]
     Active Substance: OMALIZUMAB
     Dosage: 375 MG, CYCLIC (1 EVERY 2 WEEKS)
     Route: 058
  24. OMALIZUMAB [Suspect]
     Active Substance: OMALIZUMAB
     Dosage: 375 MG, CYCLIC (1 EVERY 2 WEEKS)
     Route: 058
  25. OMALIZUMAB [Suspect]
     Active Substance: OMALIZUMAB
     Dosage: 375 MG, CYCLIC (1 EVERY 2 WEEKS)
     Route: 058
  26. OMALIZUMAB [Suspect]
     Active Substance: OMALIZUMAB
     Dosage: 375 MG, CYCLIC (1 EVERY 2 WEEKS)
     Route: 058
  27. OMALIZUMAB [Suspect]
     Active Substance: OMALIZUMAB
     Dosage: 375 MG, CYCLIC (1 EVERY 2 WEEKS)
     Route: 058
  28. OMALIZUMAB [Suspect]
     Active Substance: OMALIZUMAB
     Dosage: 375 MG, CYCLIC (1 EVERY 2 WEEKS)
     Route: 058
  29. OMALIZUMAB [Suspect]
     Active Substance: OMALIZUMAB
     Dosage: 375 MG, CYCLIC (1 EVERY 2 WEEKS)
     Route: 058
  30. OMALIZUMAB [Suspect]
     Active Substance: OMALIZUMAB
     Dosage: 375 MG, CYCLIC (1 EVERY 2 WEEKS)
     Route: 058
  31. OMALIZUMAB [Suspect]
     Active Substance: OMALIZUMAB
     Dosage: 375 MG, CYCLIC (1 EVERY 2 WEEKS)
     Route: 058
  32. OMALIZUMAB [Suspect]
     Active Substance: OMALIZUMAB
     Dosage: 375 MG, CYCLIC (1 EVERY 2 WEEKS)
     Route: 058
  33. OMALIZUMAB [Suspect]
     Active Substance: OMALIZUMAB
     Dosage: 375 MG, CYCLIC (1 EVERY 2 WEEKS)
     Route: 058
  34. OMALIZUMAB [Suspect]
     Active Substance: OMALIZUMAB
     Dosage: 375 MG, CYCLIC (1 EVERY 2 WEEKS)
     Route: 058
  35. OMALIZUMAB [Suspect]
     Active Substance: OMALIZUMAB
     Dosage: 375 MG, CYCLIC (1 EVERY 2 WEEKS)
     Route: 058
  36. OMALIZUMAB [Suspect]
     Active Substance: OMALIZUMAB
     Dosage: 375 MG, CYCLIC (1 EVERY 2 WEEKS)
     Route: 058
  37. PIROXICAM [Suspect]
     Active Substance: PIROXICAM
     Indication: Dyspnoea
     Dosage: 10 MG
     Route: 065
  38. PIROXICAM [Suspect]
     Active Substance: PIROXICAM
     Indication: Depression
     Dosage: 1 DF, 1X/DAY
     Route: 065
     Dates: start: 20190711, end: 20190718
  39. PIROXICAM [Suspect]
     Active Substance: PIROXICAM
     Indication: Anxiety
  40. ASPIRIN [Concomitant]
     Active Substance: ASPIRIN
     Indication: Prophylaxis
     Dosage: 1 DF, 1X/DAY
     Route: 048
     Dates: start: 2015
  41. ATORVASTATIN [Concomitant]
     Active Substance: ATORVASTATIN
     Dosage: 1 DF, 1X/DAY
     Route: 048
     Dates: start: 2015
  42. LORAZEPAM [Concomitant]
     Active Substance: LORAZEPAM
     Indication: Anxiety
     Dosage: 1 DF, 1X/DAY
     Route: 048
     Dates: start: 2003
  43. OXAZEPAM [Concomitant]
     Active Substance: OXAZEPAM
     Indication: Anxiety
     Dosage: 1 DF, 1X/DAY
     Route: 048
     Dates: start: 201807
  44. PAROXETINE [Concomitant]
     Active Substance: PAROXETINE
     Indication: Antidepressant therapy
     Dosage: 1 DF, 1X/DAY
     Route: 048
     Dates: start: 201712
  45. PREDNISONE [Concomitant]
     Active Substance: PREDNISONE
     Indication: Asthma
     Dosage: 1 DF, 1X/DAY
     Route: 048
     Dates: start: 201806
  46. SINGULAIR [Concomitant]
     Active Substance: MONTELUKAST SODIUM
     Indication: Asthma
     Dosage: 1 DF, 1X/DAY
     Route: 048
     Dates: start: 201709
  47. SPIRIVA [Concomitant]
     Active Substance: TIOTROPIUM BROMIDE MONOHYDRATE
     Indication: Asthma
     Dosage: 2 DF, 1X/DAY
     Route: 055
     Dates: start: 2014
  48. TRAZODONE [Concomitant]
     Active Substance: TRAZODONE HYDROCHLORIDE
     Indication: Sleep disorder
     Dosage: 1 DF, 1X/DAY
     Route: 048
     Dates: start: 2018
  49. VENTOLIN [Concomitant]
     Active Substance: ALBUTEROL SULFATE
     Indication: Asthma
     Dosage: 2 DF, 4X/DAY
     Route: 055
     Dates: start: 1998
  50. ZENHALE [Concomitant]
     Active Substance: FORMOTEROL FUMARATE\MOMETASONE FUROATE
     Indication: Asthma
     Dosage: 2 DF, 4X/DAY
     Route: 055
     Dates: start: 201709
  51. ASA;CODEINE [Concomitant]
     Indication: Prophylaxis
     Dosage: 1 DF, 1X/DAY
     Route: 048

REACTIONS (53)
  - Drug ineffective [Unknown]
  - Abdominal pain [Unknown]
  - Abscess oral [Unknown]
  - Acne [Unknown]
  - Anxiety [Not Recovered/Not Resolved]
  - Asthenia [Unknown]
  - Asthma [Unknown]
  - Back pain [Not Recovered/Not Resolved]
  - Blood cholesterol increased [Unknown]
  - Blood pressure systolic increased [Recovering/Resolving]
  - Bronchitis [Recovering/Resolving]
  - Burning sensation [Unknown]
  - Cyst [Unknown]
  - Depression [Unknown]
  - Dermatitis contact [Unknown]
  - Diarrhoea [Unknown]
  - Dizziness [Recovering/Resolving]
  - Dyspnoea [Not Recovered/Not Resolved]
  - Fatigue [Not Recovered/Not Resolved]
  - Fear [Unknown]
  - Headache [Recovered/Resolved]
  - Heart rate increased [Recovering/Resolving]
  - Hypoaesthesia [Unknown]
  - Injection site urticaria [Unknown]
  - Intervertebral disc protrusion [Unknown]
  - Lacrimation increased [Unknown]
  - Laziness [Unknown]
  - Malaise [Unknown]
  - Mental disorder [Recovering/Resolving]
  - Muscle spasms [Unknown]
  - Muscular weakness [Not Recovered/Not Resolved]
  - Myopia [Unknown]
  - Nasopharyngitis [Unknown]
  - Neck pain [Not Recovered/Not Resolved]
  - Nervousness [Unknown]
  - Osteoarthritis [Unknown]
  - Pain [Not Recovered/Not Resolved]
  - Pruritus [Not Recovered/Not Resolved]
  - Rhinorrhoea [Not Recovered/Not Resolved]
  - Sleep disorder [Unknown]
  - Sputum retention [Unknown]
  - Suicidal ideation [Unknown]
  - Tendonitis [Unknown]
  - Tinnitus [Unknown]
  - Tremor [Unknown]
  - Vision blurred [Recovering/Resolving]
  - Weight decreased [Unknown]
  - Appetite disorder [Not Recovered/Not Resolved]
  - Confusional state [Not Recovered/Not Resolved]
  - Dry mouth [Not Recovered/Not Resolved]
  - Stress [Not Recovered/Not Resolved]
  - Herpes zoster [Not Recovered/Not Resolved]
  - Stomatitis [Not Recovered/Not Resolved]

NARRATIVE: CASE EVENT DATE: 20181009
